FAERS Safety Report 8997099 (Version 1)
Quarter: 2013Q1

REPORT INFORMATION
  Report Type: Spontaneous
  Country: US (occurrence: None)
  Receive Date: 20130102
  Receipt Date: 20130102
  Transmission Date: 20140127
  Serious: Yes (Other)
  Sender: FDA-Public Use
  Company Number: None

PATIENT
  Age: 13 Month
  Sex: Female
  Weight: 10.89 kg

DRUGS (1)
  1. OMEGA-3 [Suspect]
     Indication: NUTRITIONAL SUPPLEMENTATION
     Dosage: 8OZ EVERY DAY PO
     Route: 048
     Dates: start: 20121203, end: 20121226

REACTIONS (4)
  - Ocular hyperaemia [None]
  - Diarrhoea [None]
  - Flatulence [None]
  - Respiratory tract congestion [None]
